FAERS Safety Report 11073724 (Version 1)
Quarter: 2015Q2

REPORT INFORMATION
  Report Type: Report from Study
  Country: GR (occurrence: GR)
  Receive Date: 20150428
  Receipt Date: 20150428
  Transmission Date: 20150821
  Serious: Yes (Hospitalization)
  Sender: FDA-Public Use
  Company Number: PHHY2015GR045111

PATIENT
  Sex: Female

DRUGS (3)
  1. EXELON PATCH [Suspect]
     Active Substance: RIVASTIGMINE
     Indication: DEMENTIA
     Dosage: 4.6 MG, UNK
     Route: 062
  2. EXELON PATCH [Suspect]
     Active Substance: RIVASTIGMINE
     Dosage: 9.5 MG, UNK
     Route: 062
  3. EXELON PATCH [Suspect]
     Active Substance: RIVASTIGMINE
     Dosage: 13.3 MG, UNK
     Route: 062

REACTIONS (4)
  - Abdominal pain upper [Recovered/Resolved]
  - Malaise [Unknown]
  - Bradycardia [Recovered/Resolved]
  - Off label use [Recovered/Resolved]
